FAERS Safety Report 20830043 (Version 5)
Quarter: 2022Q4

REPORT INFORMATION
  Report Type: Spontaneous
  Country: US (occurrence: None)
  Receive Date: 20220514
  Receipt Date: 20221020
  Transmission Date: 20230112
  Serious: Yes (Hospitalization)
  Sender: FDA-Public Use
  Company Number: US-ROCHE-3041602

PATIENT
  Sex: Male

DRUGS (3)
  1. ESBRIET [Suspect]
     Active Substance: PIRFENIDONE
     Indication: Idiopathic pulmonary fibrosis
     Dosage: TAKE 267 MG THREE TIMES A DAY FOR 7 DAYS WITH MEALS, THEN TAKE 534 MG 3 TIMES A DAY FOR 7 DAYS, THEN
     Route: 048
     Dates: start: 20220215
  2. ESBRIET [Suspect]
     Active Substance: PIRFENIDONE
     Route: 048
     Dates: start: 202203
  3. LUNESTA [Concomitant]
     Active Substance: ESZOPICLONE

REACTIONS (15)
  - Seizure [Unknown]
  - Blood sodium decreased [Unknown]
  - Insomnia [Unknown]
  - Dry eye [Unknown]
  - Weight decreased [Unknown]
  - Pruritus [Unknown]
  - Nausea [Unknown]
  - Arthralgia [Unknown]
  - Back pain [Unknown]
  - Abdominal pain upper [Unknown]
  - Headache [Unknown]
  - Dizziness [Unknown]
  - Fatigue [Unknown]
  - Hypotension [Unknown]
  - Pneumothorax [Unknown]
